FAERS Safety Report 19680916 (Version 3)
Quarter: 2021Q4

REPORT INFORMATION
  Report Type: Report from Study
  Country: BG (occurrence: BG)
  Receive Date: 20210810
  Receipt Date: 20211119
  Transmission Date: 20220303
  Serious: Yes (Hospitalization)
  Sender: FDA-Public Use
  Company Number: BG-ROCHE-2766715

PATIENT
  Age: 75 Year
  Sex: Female
  Weight: 68 kg

DRUGS (8)
  1. TRASTUZUMAB [Suspect]
     Active Substance: TRASTUZUMAB
     Indication: Breast cancer
     Dosage: MOST RECENT DOSE PRIOR TO THE EVENT: 29/NOV/2018
     Route: 042
     Dates: start: 20181102, end: 20181102
  2. TRASTUZUMAB [Suspect]
     Active Substance: TRASTUZUMAB
     Indication: HER2 positive breast cancer
  3. DOCETAXEL [Suspect]
     Active Substance: DOCETAXEL
     Indication: HER2 positive breast cancer
     Dosage: MOST RECENT DOSE PRIOR TO THE EVENT: 29/NOV/2018, 04/OCT/2019
     Route: 042
     Dates: start: 20181102
  4. PROPRANOLOL [Concomitant]
     Active Substance: PROPRANOLOL HYDROCHLORIDE
     Indication: Tremor
     Dosage: ONGOING = CHECKED
     Dates: start: 20201002
  5. CLOBEDERM [Concomitant]
     Indication: Neurodermatitis
     Dosage: ONGOING = CHECKED
     Dates: start: 20200328
  6. ATARAX                             /00058401/ [Concomitant]
     Indication: Neurodermatitis
     Dosage: ONGOING = CHECKED
     Dates: start: 20200310
  7. ENALAPRIL MALEATE [Concomitant]
     Active Substance: ENALAPRIL MALEATE
     Dosage: ONGOING = CHECKED
     Dates: start: 20120615
  8. AERIUS (DESLORATADINE) [Concomitant]
     Active Substance: DESLORATADINE
     Indication: Neurodermatitis
     Dosage: ONGOING = CHECKED
     Dates: start: 20200328

REACTIONS (1)
  - Femoral neck fracture [Not Recovered/Not Resolved]

NARRATIVE: CASE EVENT DATE: 20201227
